FAERS Safety Report 19835607 (Version 4)
Quarter: 2022Q2

REPORT INFORMATION
  Report Type: Report from Study
  Country: US (occurrence: US)
  Receive Date: 20210916
  Receipt Date: 20220516
  Transmission Date: 20220721
  Serious: No
  Sender: FDA-Public Use
  Company Number: US-NOVARTISTESTPH-NVSC2021US209637

PATIENT
  Age: 41 Year
  Sex: Female

DRUGS (1)
  1. COSENTYX [Suspect]
     Active Substance: SECUKINUMAB
     Indication: Psoriasis
     Dosage: 300 MG, QMO
     Route: 058
     Dates: start: 202106

REACTIONS (6)
  - Dry mouth [Not Recovered/Not Resolved]
  - Snoring [Not Recovered/Not Resolved]
  - Productive cough [Not Recovered/Not Resolved]
  - SARS-CoV-2 antibody test positive [Recovered/Resolved]
  - Anosmia [Recovered/Resolved]
  - Fatigue [Recovered/Resolved]

NARRATIVE: CASE EVENT DATE: 20211013
